FAERS Safety Report 6756825-0 (Version None)
Quarter: 2010Q2

REPORT INFORMATION
  Report Type: 
  Country: None (occurrence: None)
  Receive Date: 20100524
  Receipt Date: 20100205
  Transmission Date: 20101027
  Serious: No
  Sender: FDA-Public Use
  Company Number: 006042

PATIENT
  Sex: Female

DRUGS (2)
  1. CIMZIA [Suspect]
     Indication: CROHN'S DISEASE
     Dosage: (400 MG MONTHLY SUBCUTANEOUS)
     Route: 058
     Dates: start: 20090505
  2. MERCAPTOPURINE [Concomitant]

REACTIONS (2)
  - CELLULITIS [None]
  - PYREXIA [None]
